FAERS Safety Report 15681925 (Version 1)
Quarter: 2018Q4

REPORT INFORMATION
  Report Type: Spontaneous
  Country: CA (occurrence: CA)
  Receive Date: 20181203
  Receipt Date: 20181203
  Transmission Date: 20190205
  Serious: Yes (Other)
  Sender: FDA-Public Use
  Company Number: CA-INGENUS PHARMACEUTICALS NJ, LLC-ING201811-001105

PATIENT
  Sex: Female

DRUGS (3)
  1. TISSUE PLASMINOGEN ACTIVATOR [Suspect]
     Active Substance: ALTEPLASE
     Indication: CEREBROVASCULAR ACCIDENT
  2. CARISOPRODOL, ASPIRIN AND CODEINE PHOSPHATE [Suspect]
     Active Substance: ASPIRIN\CARISOPRODOL\CODEINE PHOSPHATE
  3. CLOPIDOGREL [Concomitant]
     Active Substance: CLOPIDOGREL BISULFATE

REACTIONS (3)
  - Drug interaction [Unknown]
  - Condition aggravated [Recovered/Resolved]
  - Angioedema [Recovered/Resolved]
